FAERS Safety Report 7454403-1 (Version None)
Quarter: 2011Q1

REPORT INFORMATION
  Report Type: 
  Country: None (occurrence: None)
  Receive Date: 20110302
  Receipt Date: 20110113
  Transmission Date: 20110831
  Serious: No
  Sender: FDA-Public Use
  Company Number: 025499

PATIENT
  Sex: Female
  Weight: 44.5 kg

DRUGS (1)
  1. CIMZIA [Suspect]
     Indication: CROHN'S DISEASE
     Dosage: 400 MG 1X/4 WEEKS SUBCUTANEOUS
     Route: 058
     Dates: start: 20090115

REACTIONS (7)
  - BLADDER PAIN [None]
  - FATIGUE [None]
  - GAIT DISTURBANCE [None]
  - FISTULA [None]
  - TACHYCARDIA [None]
  - URINE ABNORMALITY [None]
  - BALANCE DISORDER [None]
